FAERS Safety Report 10586044 (Version 2)
Quarter: 2014Q4

REPORT INFORMATION
  Report Type: Spontaneous
  Country: US (occurrence: US)
  Receive Date: 20141115
  Receipt Date: 20141115
  Transmission Date: 20150529
  Serious: No
  Sender: FDA-Public Use
  Company Number: US-ASTRAZENECA-2011SE00654

PATIENT
  Age: 71 Year
  Sex: Female
  Weight: 88.5 kg

DRUGS (19)
  1. SEROQUEL [Suspect]
     Active Substance: QUETIAPINE FUMARATE
     Indication: MAJOR DEPRESSION
     Route: 048
     Dates: start: 2009
  2. SEROQUEL [Suspect]
     Active Substance: QUETIAPINE FUMARATE
     Indication: DEPRESSION
     Route: 048
     Dates: start: 2009
  3. SEROQUEL [Suspect]
     Active Substance: QUETIAPINE FUMARATE
     Indication: MAJOR DEPRESSION
     Dosage: HALF DOSE
     Route: 048
     Dates: start: 20141008
  4. SEROQUEL [Suspect]
     Active Substance: QUETIAPINE FUMARATE
     Indication: MAJOR DEPRESSION
     Route: 048
     Dates: start: 20141101
  5. VITAMINS [Concomitant]
     Active Substance: VITAMINS
  6. SEROQUEL [Suspect]
     Active Substance: QUETIAPINE FUMARATE
     Indication: DEPRESSION
     Dosage: HALF DOSE
     Route: 048
     Dates: start: 20141008
  7. SEROQUEL [Suspect]
     Active Substance: QUETIAPINE FUMARATE
     Indication: DEPRESSION
     Route: 048
  8. SEROQUEL [Suspect]
     Active Substance: QUETIAPINE FUMARATE
     Indication: DEPRESSION
     Route: 048
     Dates: start: 2009
  9. SEROQUEL [Suspect]
     Active Substance: QUETIAPINE FUMARATE
     Indication: DEPRESSION
     Route: 048
     Dates: start: 20141101
  10. SEROQUEL [Suspect]
     Active Substance: QUETIAPINE FUMARATE
     Indication: MAJOR DEPRESSION
     Dosage: HALF DOSE
     Route: 048
     Dates: start: 201405
  11. SEROQUEL [Suspect]
     Active Substance: QUETIAPINE FUMARATE
     Indication: DEPRESSION
     Dosage: HALF DOSE
     Route: 048
     Dates: start: 201405
  12. SEROQUEL [Suspect]
     Active Substance: QUETIAPINE FUMARATE
     Indication: DEPRESSION
     Route: 048
     Dates: start: 20141101
  13. LUMIGAN [Concomitant]
     Active Substance: BIMATOPROST
  14. SEROQUEL [Suspect]
     Active Substance: QUETIAPINE FUMARATE
     Indication: DEPRESSION
     Dosage: HALF DOSE
     Route: 048
     Dates: start: 201405
  15. SEROQUEL [Suspect]
     Active Substance: QUETIAPINE FUMARATE
     Indication: MAJOR DEPRESSION
     Route: 048
  16. ATENOLOL. [Concomitant]
     Active Substance: ATENOLOL
  17. ASA [Concomitant]
     Active Substance: ASPIRIN
     Dosage: PRN
  18. SEROQUEL [Suspect]
     Active Substance: QUETIAPINE FUMARATE
     Indication: DEPRESSION
     Dosage: HALF DOSE
     Route: 048
     Dates: start: 20141008
  19. SEROQUEL [Suspect]
     Active Substance: QUETIAPINE FUMARATE
     Indication: DEPRESSION
     Route: 048

REACTIONS (18)
  - Muscle spasms [Unknown]
  - Constipation [Unknown]
  - Headache [Unknown]
  - Visual field defect [Unknown]
  - Intentional product use issue [Unknown]
  - Depression [Unknown]
  - Somnolence [Unknown]
  - Nocturia [Unknown]
  - Insomnia [Unknown]
  - Feeling abnormal [Unknown]
  - Blood pressure fluctuation [Unknown]
  - Dizziness [Unknown]
  - Back pain [Unknown]
  - Glaucoma [Unknown]
  - Body height decreased [Unknown]
  - Palpitations [Unknown]
  - Memory impairment [Unknown]
  - Urine odour abnormal [Unknown]

NARRATIVE: CASE EVENT DATE: 2009
